FAERS Safety Report 9735816 (Version 2)
Quarter: 2015Q3

REPORT INFORMATION
  Report Type: Spontaneous
  Country: US (occurrence: US)
  Receive Date: 20131206
  Receipt Date: 20150804
  Transmission Date: 20151125
  Serious: No
  Sender: FDA-Public Use
  Company Number: US-GILEAD-2009-0023814

PATIENT
  Age: 41 Year
  Sex: Female

DRUGS (9)
  1. AZATHIOPRINE. [Concomitant]
     Active Substance: AZATHIOPRINE
  2. LETAIRIS [Suspect]
     Active Substance: AMBRISENTAN
     Route: 048
     Dates: start: 20090801, end: 20090813
  3. PREDNISONE. [Concomitant]
     Active Substance: PREDNISONE
  4. LETAIRIS [Suspect]
     Active Substance: AMBRISENTAN
     Indication: PULMONARY ARTERIAL HYPERTENSION
     Route: 048
     Dates: start: 20090814
  5. REVATIO [Concomitant]
     Active Substance: SILDENAFIL CITRATE
  6. OMEPRAZOLE. [Concomitant]
     Active Substance: OMEPRAZOLE
  7. WARFARIN [Concomitant]
     Active Substance: WARFARIN
  8. COLCHICIN [Concomitant]
     Active Substance: COLCHICINE
  9. LASIX [Concomitant]
     Active Substance: FUROSEMIDE

REACTIONS (2)
  - Paraesthesia [Recovered/Resolved]
  - Peripheral swelling [Not Recovered/Not Resolved]

NARRATIVE: CASE EVENT DATE: 20090806
